FAERS Safety Report 8801849 (Version 2)
Quarter: 2012Q4

REPORT INFORMATION
  Report Type: 
  Country: US (occurrence: US)
  Receive Date: 20120921
  Receipt Date: 20121022
  Transmission Date: 20130627
  Serious: No
  Sender: FDA-Public Use
  Company Number: US-PFIZER INC-2012231722

PATIENT
  Age: 77 Year
  Sex: Male
  Weight: 87.98 kg

DRUGS (3)
  1. PROTONIX [Suspect]
     Indication: OESOPHAGITIS
     Dosage: 40 mg, 2x/day
     Dates: start: 201208, end: 20120815
  2. LEVAQUIN [Suspect]
     Indication: PROSTATITIS
     Dosage: UNK
     Dates: start: 201206, end: 201206
  3. NORVASC [Concomitant]
     Indication: HYPERTENSION
     Dosage: 5 mg, 1x/day

REACTIONS (3)
  - Dyspepsia [Unknown]
  - Pruritus [Unknown]
  - Pruritus [Recovered/Resolved]
